FAERS Safety Report 8959075 (Version 1)
Quarter: 2012Q4

REPORT INFORMATION
  Report Type: Spontaneous
  Country: HR (occurrence: None)
  Receive Date: 20121128
  Receipt Date: 20121128
  Transmission Date: 20130627
  Serious: Yes (Death, Other)
  Sender: FDA-Public Use
  Company Number: FK201203406

PATIENT
  Age: 61 Year
  Sex: Male

DRUGS (2)
  1. ACYCLOVIR SODIUM (MANUFACTURER UNKNOWN) (ACYCLOVIR SODIUM) (ACYCLOVIR SODIUM) [Suspect]
     Indication: HERPES ZOSTER
     Dosage: Unknown, Intravenous (not otherwise specified)
     Route: 042
  2. CORTICOSTEROIDS (CORTICOSTEROIDS) [Concomitant]

REACTIONS (4)
  - Coma [None]
  - Pleocytosis [None]
  - Varicella virus test positive [None]
  - Infection [None]
